FAERS Safety Report 6252640-5 (Version None)
Quarter: 2009Q2

REPORT INFORMATION
  Report Type: 
  Country: None (occurrence: None)
  Receive Date: 20090629
  Receipt Date: 20090629
  Transmission Date: 20091009
  Serious: No
  Sender: FDA-Public Use
  Company Number: None

PATIENT
  Age: 58 Year
  Sex: Male
  Weight: 88.4514 kg

DRUGS (1)
  1. LYRICA [Suspect]
     Indication: BACK PAIN
     Dosage: 30 TABS 3XD PO
     Route: 048
     Dates: start: 20090401, end: 20090425

REACTIONS (5)
  - ACNE [None]
  - AXILLARY MASS [None]
  - BURNING SENSATION [None]
  - PAIN [None]
  - WHITE BLOOD CELL COUNT INCREASED [None]
